FAERS Safety Report 5635049-4 (Version None)
Quarter: 2008Q1

REPORT INFORMATION
  Report Type: 
  Country: None (occurrence: None)
  Receive Date: 20080222
  Receipt Date: 20080212
  Transmission Date: 20080703
  Serious: Yes (Other)
  Sender: FDA-Public Use
  Company Number: US-PFIZER INC-2008014237

PATIENT
  Sex: Female

DRUGS (3)
  1. LYRICA [Suspect]
     Indication: FIBROMYALGIA
  2. DRUG, UNSPECIFIED [Concomitant]
  3. ANALGESICS [Concomitant]

REACTIONS (15)
  - ANXIETY [None]
  - DEPRESSION [None]
  - DIZZINESS [None]
  - ELEVATED MOOD [None]
  - FEELING ABNORMAL [None]
  - HEADACHE [None]
  - INCREASED APPETITE [None]
  - INSOMNIA [None]
  - LIBIDO DECREASED [None]
  - MOOD ALTERED [None]
  - PARANOIA [None]
  - SINUS CONGESTION [None]
  - SLEEP DISORDER [None]
  - SOMNOLENCE [None]
  - VISION BLURRED [None]
